FAERS Safety Report 4600547-9 (Version None)
Quarter: 2005Q1

REPORT INFORMATION
  Report Type: 
  Country: None (occurrence: None)
  Receive Date: 20050304
  Receipt Date: 20050223
  Transmission Date: 20050727
  Serious: Yes (Hospitalization)
  Sender: FDA-Public Use
  Company Number: RENA-11271

PATIENT
  Age: 71 Year
  Sex: Female

DRUGS (14)
  1. PHOSBLOCK - 250 MG TABLET [Suspect]
     Indication: HYPERPHOSPHATAEMIA
     Dosage: 0.25 G TID PO
     Route: 048
     Dates: start: 20040612, end: 20040714
  2. PHOSBLOCK - 250 MG TABLET [Suspect]
     Indication: HYPERPHOSPHATAEMIA
     Dosage: 0.5 G TID PO
     Route: 048
     Dates: start: 20040715, end: 20040810
  3. PHOSBLOCK - 250 MG TABLET [Suspect]
     Indication: HYPERPHOSPHATAEMIA
     Dosage: 0.75 G TID PO
     Route: 048
     Dates: start: 20040811
  4. EPOETIN ALPHA [Concomitant]
  5. ISOSORBIDE DINITRATE [Concomitant]
  6. CALCIUM CARBONATE [Concomitant]
  7. FAMOTIDINE [Concomitant]
  8. SENNOSIDE [Concomitant]
  9. TEPRENONE [Concomitant]
  10. PREDNISOLONE [Concomitant]
  11. D-CHLORPHENIRAMINE [Concomitant]
  12. LOXOPROFEN [Concomitant]
  13. AMEZINIUM METILSULFATE [Concomitant]
  14. CALCIUM POLYSTYRENE SULFONATE [Concomitant]

REACTIONS (8)
  - ABDOMINAL PAIN [None]
  - ANAEMIA [None]
  - BLOOD ALKALINE PHOSPHATASE INCREASED [None]
  - CONDITION AGGRAVATED [None]
  - CONSTIPATION [None]
  - HEPATIC FUNCTION ABNORMAL [None]
  - INFECTION [None]
  - RENAL HAEMORRHAGE [None]
